FAERS Safety Report 17184698 (Version 1)
Quarter: 2019Q4

REPORT INFORMATION
  Report Type: Spontaneous
  Country: US (occurrence: US)
  Receive Date: 20191220
  Receipt Date: 20191220
  Transmission Date: 20200122
  Serious: Yes (Other)
  Sender: FDA-Public Use
  Company Number: US-ABBVIE-19K-163-3200126-00

PATIENT
  Sex: Female

DRUGS (1)
  1. LUPRON DEPOT [Suspect]
     Active Substance: LEUPROLIDE ACETATE
     Indication: PRODUCT USED FOR UNKNOWN INDICATION
     Route: 065

REACTIONS (8)
  - Surgery [Unknown]
  - Menopause [Unknown]
  - Gait inability [Unknown]
  - Limb deformity [Unknown]
  - Drug ineffective [Unknown]
  - Nerve injury [Unknown]
  - Arthritis [Unknown]
  - Bone density decreased [Unknown]
